FAERS Safety Report 17532955 (Version 1)
Quarter: 2020Q1

REPORT INFORMATION
  Report Type: Report from Study
  Country: JP (occurrence: JP)
  Receive Date: 20200312
  Receipt Date: 20200312
  Transmission Date: 20200409
  Serious: Yes (Death, Hospitalization)
  Sender: FDA-Public Use
  Company Number: JP-MYLANLABS-2020M1026834

PATIENT

DRUGS (3)
  1. SULTAMICILLIN [Suspect]
     Active Substance: SULTAMICILLIN
     Indication: PNEUMONIA BACTERIAL
     Route: 065
  2. VANCOMYCIN [Suspect]
     Active Substance: VANCOMYCIN
     Indication: PNEUMONIA STAPHYLOCOCCAL
     Route: 065
  3. GARENOXACIN [Suspect]
     Active Substance: GARENOXACIN
     Indication: PNEUMONIA BACTERIAL
     Route: 065

REACTIONS (1)
  - Treatment failure [Fatal]
